FAERS Safety Report 18876091 (Version 1)
Quarter: 2021Q1

REPORT INFORMATION
  Report Type: Report from Study
  Country: JP (occurrence: JP)
  Receive Date: 20210210
  Receipt Date: 20210210
  Transmission Date: 20210420
  Serious: No
  Sender: FDA-Public Use
  Company Number: JP-B.I. PHARMACEUTICALS,INC./RIDGEFIELD-2020-BI-066690

PATIENT
  Age: 71 Year
  Sex: Male
  Weight: 70 kg

DRUGS (1)
  1. TRADIANCE [Suspect]
     Active Substance: EMPAGLIFLOZIN\LINAGLIPTIN
     Indication: TYPE 2 DIABETES MELLITUS
     Route: 048
     Dates: start: 20190603

REACTIONS (1)
  - Urine ketone body present [Recovered/Resolved]

NARRATIVE: CASE EVENT DATE: 20191202
